FAERS Safety Report 9650867 (Version 3)
Quarter: 2014Q2

REPORT INFORMATION
  Report Type: Report from Study
  Country: JP (occurrence: JP)
  Receive Date: 20131029
  Receipt Date: 20140515
  Transmission Date: 20141212
  Serious: Yes (Other)
  Sender: FDA-Public Use
  Company Number: JP-JNJFOC-20131011701

PATIENT
  Age: 63 Year
  Sex: Male
  Weight: 94 kg

DRUGS (10)
  1. STELARA [Suspect]
     Indication: PSORIASIS
     Route: 058
     Dates: start: 20130425, end: 20130425
  2. STELARA [Suspect]
     Indication: PSORIASIS
     Route: 058
     Dates: start: 20130328, end: 20130328
  3. STELARA [Suspect]
     Indication: PSORIASIS
     Route: 058
     Dates: start: 20130718, end: 20130718
  4. STELARA [Suspect]
     Indication: PSORIASIS
     Route: 058
     Dates: start: 20140106, end: 20140106
  5. STELARA [Suspect]
     Indication: PSORIASIS
     Route: 058
     Dates: start: 20140331
  6. STELARA [Suspect]
     Indication: PSORIASIS
     Route: 058
     Dates: start: 20131016, end: 20131016
  7. ISCOTIN [Suspect]
     Indication: ANTIBIOTIC PROPHYLAXIS
     Route: 048
     Dates: start: 20130307, end: 20131217
  8. OXAROL [Concomitant]
     Indication: PSORIASIS
     Route: 061
  9. DOVONEX [Concomitant]
     Indication: PSORIASIS
     Dosage: 1-5G/DAY
     Route: 061
  10. ANTEBATE [Concomitant]
     Indication: PSORIASIS
     Dosage: 1-5G/DAY
     Route: 061

REACTIONS (2)
  - Platelet count decreased [Not Recovered/Not Resolved]
  - Liver disorder [Not Recovered/Not Resolved]
